FAERS Safety Report 4745738-1 (Version None)
Quarter: 2005Q3

REPORT INFORMATION
  Report Type: 
  Country: None (occurrence: None)
  Receive Date: 20050815
  Receipt Date: 20050815
  Transmission Date: 20060218
  Serious: Yes (Disabling)
  Sender: FDA-Public Use
  Company Number: None

PATIENT
  Age: 54 Year
  Sex: Male
  Weight: 86.1834 kg

DRUGS (9)
  1. VIAGRA [Suspect]
     Indication: ERECTILE DYSFUNCTION
     Dosage: (POSSIBLY ONCE/MONTH)
     Dates: end: 20041101
  2. ASPIRIN [Concomitant]
  3. PLAVIX [Concomitant]
  4. WELLBUTRIN [Concomitant]
  5. LOPRESSOR [Concomitant]
  6. TRAZODONE [Concomitant]
  7. KLONOPIN [Concomitant]
  8. INSULIN [Concomitant]
  9. VICODIN [Concomitant]

REACTIONS (4)
  - BLINDNESS UNILATERAL [None]
  - OPTIC ATROPHY [None]
  - OPTIC ISCHAEMIC NEUROPATHY [None]
  - VISUAL FIELD DEFECT [None]
